FAERS Safety Report 9153255 (Version 4)
Quarter: 2013Q4

REPORT INFORMATION
  Report Type: Spontaneous
  Country: US (occurrence: US)
  Receive Date: 20130311
  Receipt Date: 20131003
  Transmission Date: 20140711
  Serious: Yes (Other)
  Sender: FDA-Public Use
  Company Number: US-BIOGENIDEC-2013BI020962

PATIENT
  Age: 53 Year
  Sex: Female

DRUGS (6)
  1. TYSABRI [Suspect]
     Indication: MULTIPLE SCLEROSIS
     Route: 042
     Dates: start: 20120414, end: 20130226
  2. BACLOFEN [Concomitant]
     Route: 048
  3. LOSERTAN/HCTZ [Concomitant]
  4. CYMBALTA [Concomitant]
  5. B 12 INJECTIONS [Concomitant]
  6. RESTORIL [Concomitant]

REACTIONS (2)
  - Stevens-Johnson syndrome [Recovered/Resolved]
  - Dermatitis allergic [Recovered/Resolved]
